FAERS Safety Report 4828161-0 (Version None)
Quarter: 2005Q4

REPORT INFORMATION
  Report Type: 
  Country: None (occurrence: None)
  Receive Date: 20051115
  Receipt Date: 20050713
  Transmission Date: 20060501
  Serious: Yes (Other)
  Sender: FDA-Public Use
  Company Number: 13031

PATIENT
  Age: 33 Year
  Sex: Female
  Weight: 65.9 kg

DRUGS (5)
  1. WELLBUTRIN XL [Suspect]
     Indication: DEPRESSION
     Dosage: 300MG PER DAY
  2. UNSPECIFIED SSRI [Concomitant]
  3. MOOD MEDICATION [Concomitant]
  4. TRICYCLIC ANTIDEPRESSANT [Concomitant]
  5. PRENATAL VITAMINS [Concomitant]

REACTIONS (3)
  - ABORTION SPONTANEOUS [None]
  - DRUG EXPOSURE DURING PREGNANCY [None]
  - PREGNANCY [None]
